FAERS Safety Report 20911198 (Version 6)
Quarter: 2022Q3

REPORT INFORMATION
  Report Type: Report from Study
  Country: BR (occurrence: BR)
  Receive Date: 20220603
  Receipt Date: 20220719
  Transmission Date: 20221027
  Serious: Yes (Death, Hospitalization)
  Sender: FDA-Public Use
  Company Number: BR-GLAXOSMITHKLINE-BR2022GSK085603

PATIENT

DRUGS (23)
  1. BELANTAMAB MAFODOTIN [Suspect]
     Active Substance: BELANTAMAB MAFODOTIN
     Indication: Plasma cell myeloma
     Dosage: 2.50 MG/KG, CYC, DAY 1 OF  EVERY 21 DAYS CYCLE
     Route: 042
     Dates: start: 20220405, end: 20220405
  2. BELANTAMAB MAFODOTIN [Suspect]
     Active Substance: BELANTAMAB MAFODOTIN
     Dosage: 2.50 MG/KG, CYC, DAY 1 OF  EVERY 21 DAYS CYCLE
     Route: 042
     Dates: start: 20220426, end: 20220426
  3. ENTECAVIR [Concomitant]
     Active Substance: ENTECAVIR
     Indication: Prophylaxis
     Dosage: 0.5 MG, QD
     Route: 048
     Dates: start: 202003
  4. PANTOPRAZOLE [Concomitant]
     Active Substance: PANTOPRAZOLE
     Indication: Prophylaxis
     Dosage: 20 MG, QD
     Route: 048
     Dates: start: 2020
  5. BACTRIM [Concomitant]
     Active Substance: SULFAMETHOXAZOLE\TRIMETHOPRIM
     Indication: Prophylaxis
     Dosage: 1 DF, Z, 3 TIMES PER WEEK
     Route: 048
     Dates: start: 202108
  6. ACYCLOVIR [Concomitant]
     Active Substance: ACYCLOVIR
     Indication: Antiviral prophylaxis
     Dosage: 200 MG, BID
     Route: 048
     Dates: start: 202108
  7. TADALAFIL [Concomitant]
     Active Substance: TADALAFIL
     Indication: Hyperplasia
     Dosage: 5 MG, QD
     Route: 048
     Dates: start: 202106
  8. OSCAL D [Concomitant]
     Active Substance: CALCIUM CARBONATE\CHOLECALCIFEROL
     Indication: Osteoporosis prophylaxis
     Dosage: 1 DF, QD
     Route: 048
     Dates: start: 201804
  9. PERUVIAN MACA [Concomitant]
     Indication: Erectile dysfunction
     Dosage: 1 G, QD
     Route: 048
     Dates: start: 202106
  10. MIRTAZAPINE [Concomitant]
     Active Substance: MIRTAZAPINE
     Indication: Insomnia
     Dosage: 7.5 MG, QD
     Route: 048
     Dates: start: 2020
  11. VITAMIN D3 [Concomitant]
     Active Substance: CHOLECALCIFEROL
     Indication: Osteoporosis prophylaxis
     Dosage: 1000 IU, Z, 3 TIMES PER WEEK
     Route: 048
     Dates: start: 201804
  12. SILDENAFIL CITRATE [Concomitant]
     Active Substance: SILDENAFIL CITRATE
     Indication: Erectile dysfunction
     Dosage: 50 MG, PRN
     Route: 048
     Dates: start: 202106
  13. OMEGA 3 [Concomitant]
     Active Substance: CAPSAICIN
     Indication: Erectile dysfunction
     Dosage: 1 UNK, 2 TIMES PER WEEK
     Route: 048
     Dates: start: 202106
  14. ALLOPURINOL [Concomitant]
     Active Substance: ALLOPURINOL
     Indication: Prophylaxis
     Dosage: 300 MG, QD
     Route: 048
     Dates: start: 20220330, end: 20220425
  15. ONDANSETRON [Concomitant]
     Active Substance: ONDANSETRON
     Indication: Infusion related reaction
     Dosage: 8 MG, QID
     Route: 048
     Dates: start: 20220405, end: 20220406
  16. ONDANSETRON [Concomitant]
     Active Substance: ONDANSETRON
     Dosage: 8 MG, SINGLE
     Route: 042
     Dates: start: 20220426, end: 20220426
  17. DIPYRON [Concomitant]
     Indication: Infusion related reaction
     Dosage: 1 G, TID
     Route: 048
     Dates: start: 20220405, end: 20220406
  18. LEVOFLOXACIN [Concomitant]
     Active Substance: LEVOFLOXACIN
     Indication: Respiratory tract infection
     Dosage: 500 MG, QD
     Route: 048
     Dates: start: 20220415, end: 20220419
  19. FILGRASTIM [Concomitant]
     Active Substance: FILGRASTIM
     Indication: Neutropenia
     Dosage: 300 UG, QD
     Route: 058
     Dates: start: 20220425
  20. ACETAMINOPHEN [Concomitant]
     Active Substance: ACETAMINOPHEN
     Indication: Prophylaxis
     Dosage: 750 MG, SINGLE
     Route: 048
     Dates: start: 20220426, end: 20220426
  21. DIPHENHYDRAMINE [Concomitant]
     Active Substance: DIPHENHYDRAMINE
     Indication: Prophylaxis
     Dosage: 50 MG, SINGLE
     Route: 042
     Dates: start: 20220426, end: 20220426
  22. METHYLPREDNISOLONE [Concomitant]
     Active Substance: METHYLPREDNISOLONE
     Indication: Prophylaxis
     Dosage: 80 MG, SINGLE
     Route: 042
     Dates: start: 20220426, end: 20220426
  23. TRAMADOL [Concomitant]
     Active Substance: TRAMADOL
     Indication: Prophylaxis
     Dosage: 100 MG, SINGLE
     Route: 042
     Dates: start: 20220426, end: 20220426

REACTIONS (2)
  - Haemorrhagic stroke [Fatal]
  - Hypercalcaemia [Not Recovered/Not Resolved]

NARRATIVE: CASE EVENT DATE: 20220526
